FAERS Safety Report 9326924 (Version 2)
Quarter: 2013Q3

REPORT INFORMATION
  Report Type: Spontaneous
  Country: US (occurrence: US)
  Receive Date: 20130604
  Receipt Date: 20130708
  Transmission Date: 20140515
  Serious: No
  Sender: FDA-Public Use
  Company Number: US-AMGEN-USASP2013031900

PATIENT
  Age: 71 Year
  Sex: Female
  Weight: 82.54 kg

DRUGS (9)
  1. ENBREL [Suspect]
     Indication: RHEUMATOID ARTHRITIS
     Dosage: 50 MG, QWK
     Route: 058
     Dates: start: 20130501
  2. METHOTREXATE [Concomitant]
     Dosage: 12.5 MG, UNK
     Route: 048
     Dates: start: 20130516
  3. ALENDRONATE SODIUM [Concomitant]
     Dosage: 70 MG, UNK
     Dates: start: 20121004
  4. COLCRYS [Concomitant]
     Dosage: 0.6 MG, UNK
     Dates: start: 20121120
  5. ALLOPURINOL [Concomitant]
     Dosage: 100 MG, UNK
     Dates: start: 20130514
  6. PREDNISONE [Concomitant]
     Dosage: 5 MG, UNK
     Dates: start: 20130516
  7. FOLIC ACID [Concomitant]
     Dosage: 1 MG, UNK
     Dates: start: 20130516
  8. CENTRUM SILVER                     /02363801/ [Concomitant]
  9. TYLENOL ARTHRITIS [Concomitant]
     Dosage: 650 MG, UNK

REACTIONS (3)
  - Feeling hot [Not Recovered/Not Resolved]
  - Musculoskeletal pain [Not Recovered/Not Resolved]
  - Arthralgia [Not Recovered/Not Resolved]
